FAERS Safety Report 25340775 (Version 6)
Quarter: 2025Q3

REPORT INFORMATION
  Report Type: Report from Study
  Country: US (occurrence: US)
  Receive Date: 20250521
  Receipt Date: 20250805
  Transmission Date: 20251020
  Serious: No
  Sender: ACADIA PHARMACEUTICALS
  Company Number: US-ACADIA PHARMACEUTICALS INC.-ACA-2025-PIM-006053

PATIENT
  Sex: Female

DRUGS (16)
  1. NUPLAZID [Suspect]
     Active Substance: PIMAVANSERIN TARTRATE
     Indication: Parkinson^s disease psychosis
     Dosage: 34 MILLIGRAM, QD
     Route: 048
     Dates: end: 20250521
  2. NUPLAZID [Suspect]
     Active Substance: PIMAVANSERIN TARTRATE
     Dosage: 34 MILLIGRAM, QD
     Route: 048
     Dates: start: 20250522
  3. TRAMADOL [Concomitant]
     Active Substance: TRAMADOL
  4. INDAPAMIDE [Concomitant]
     Active Substance: INDAPAMIDE
  5. OMEPRAZOLE [Concomitant]
     Active Substance: OMEPRAZOLE
  6. DONEPEZIL [Concomitant]
     Active Substance: DONEPEZIL
  7. CITALOPRAM [Concomitant]
     Active Substance: CITALOPRAM
  8. LISINOPRIL [Concomitant]
     Active Substance: LISINOPRIL
  9. METFORMIN [Concomitant]
     Active Substance: METFORMIN HYDROCHLORIDE
  10. GABAPENTIN [Concomitant]
     Active Substance: GABAPENTIN
  11. OXYBUTYNIN CHLORIDE [Concomitant]
     Active Substance: OXYBUTYNIN CHLORIDE
  12. CALCIUM [Concomitant]
     Active Substance: CALCIUM
  13. MONTELUKAST [Concomitant]
     Active Substance: MONTELUKAST
  14. ALENDRONATE [Concomitant]
     Active Substance: ALENDRONATE SODIUM
  15. OXCARBAZEPINE [Concomitant]
     Active Substance: OXCARBAZEPINE
  16. ZONISAMIDE [Concomitant]
     Active Substance: ZONISAMIDE

REACTIONS (6)
  - Memory impairment [Recovered/Resolved]
  - Memory impairment [Not Recovered/Not Resolved]
  - Adverse drug reaction [Not Recovered/Not Resolved]
  - Somnolence [Not Recovered/Not Resolved]
  - Fall [Not Recovered/Not Resolved]
  - Drug ineffective [Not Recovered/Not Resolved]
